FAERS Safety Report 11542900 (Version 8)
Quarter: 2016Q3

REPORT INFORMATION
  Report Type: Spontaneous
  Country: US (occurrence: US)
  Receive Date: 20150923
  Receipt Date: 20160822
  Transmission Date: 20161109
  Serious: Yes (Other)
  Sender: FDA-Public Use
  Company Number: US-GLAXOSMITHKLINE-US2015GSK123090

PATIENT
  Age: 53 Year
  Sex: Female

DRUGS (10)
  1. FLOLAN [Suspect]
     Active Substance: EPOPROSTENOL SODIUM
     Dosage: 44 NG/KG/MIN CONTINUOUS, CONCENTRATION: 75,000 NG/ML, PUMP RATE: 76 ML/DAY, VIAL STRENGTH: 1.5 MG/ML
     Dates: start: 20150821
  2. FLOLAN [Suspect]
     Active Substance: EPOPROSTENOL SODIUM
     Dosage: 47 NG/KG/MIN, CONCENTRATION 45,000 NG/ML, PUMP RATE 61 ML/DAY
     Dates: start: 20150821
  3. FLOLAN DILUENT SOLUTION FOR INJECTION [Suspect]
     Active Substance: GLYCINE\MANNITOL\SODIUM CHLORIDE
     Indication: PULMONARY ARTERIAL HYPERTENSION
     Dosage: 47 NG/KG/MIN CONTINUOUSLY
     Dates: start: 20150821
  4. FLOLAN [Suspect]
     Active Substance: EPOPROSTENOL SODIUM
     Dosage: 20 NG/KG/MIN (CONCENTRATION 15,000 NG/ML, PUMP RATE 86 ML/DAY, VIAL STRENGTH 1.5 MG), CO
  5. OPSUMIT [Concomitant]
     Active Substance: MACITENTAN
  6. FLOLAN [Suspect]
     Active Substance: EPOPROSTENOL SODIUM
     Indication: PULMONARY ARTERIAL HYPERTENSION
     Dosage: 4 NG/KG/MIN CONTINUOUSLY
     Route: 042
     Dates: start: 20150821
  7. FLOLAN [Suspect]
     Active Substance: EPOPROSTENOL SODIUM
     Dosage: 15 NG/KG/MIN CONTINUOUSLY (CONCENTRATION 30,000 NG/ML, PUMP RATE 65 ML/DAY, 1.5 VIAL STRENGTH
     Dates: start: 20150821
  8. FLOLAN [Suspect]
     Active Substance: EPOPROSTENOL SODIUM
     Dosage: 42 NG/KG/MIN, CONCENTRATION 75,000 NG/ML, PUMP RATE 78 ML/DAY
     Dates: start: 20150821
  9. FLOLAN [Suspect]
     Active Substance: EPOPROSTENOL SODIUM
     Indication: PULMONARY HYPERTENSION
     Dosage: 6 NG/KG/MIN CONTINUOUSLY
     Route: 042
  10. FLOLAN [Suspect]
     Active Substance: EPOPROSTENOL SODIUM
     Dosage: 27 NG/KG/MIN, CONCENTRATION 45,000, PUMP RATE: 78ML/DAY
     Dates: start: 20150821

REACTIONS (28)
  - Dyspnoea exertional [Unknown]
  - Drug dose omission [Unknown]
  - Pain in extremity [Unknown]
  - Device breakage [Unknown]
  - Medication error [Unknown]
  - Pain in jaw [Unknown]
  - Wheezing [Not Recovered/Not Resolved]
  - Skin exfoliation [Unknown]
  - Fatigue [Unknown]
  - Product preparation error [Unknown]
  - Pulmonary congestion [Unknown]
  - Catheter site erythema [Unknown]
  - Cough [Unknown]
  - Product quality issue [Unknown]
  - Respiration abnormal [Unknown]
  - Feeling abnormal [Unknown]
  - Diarrhoea [Not Recovered/Not Resolved]
  - Catheter site pain [Not Recovered/Not Resolved]
  - Catheter site pruritus [Not Recovered/Not Resolved]
  - Flushing [Unknown]
  - Tachycardia [Unknown]
  - Rash [Not Recovered/Not Resolved]
  - Dizziness [Unknown]
  - Nausea [Unknown]
  - Decreased appetite [Unknown]
  - Dyspnoea [Not Recovered/Not Resolved]
  - Gout [Unknown]
  - Device leakage [Unknown]

NARRATIVE: CASE EVENT DATE: 20160428
